FAERS Safety Report 5384583-3 (Version None)
Quarter: 2007Q3

REPORT INFORMATION
  Report Type: 
  Country: None (occurrence: None)
  Receive Date: 20070711
  Receipt Date: 20070702
  Transmission Date: 20080115
  Serious: Yes (Death, Hospitalization, Other)
  Sender: FDA-Public Use
  Company Number: US-PFIZER INC-2007021311

PATIENT
  Sex: Female

DRUGS (2)
  1. BEXTRA [Suspect]
     Indication: MUSCULOSKELETAL PAIN
     Dates: start: 20031001, end: 20040211
  2. BEXTRA [Suspect]
     Indication: NECK PAIN

REACTIONS (1)
  - MYOCARDIAL INFARCTION [None]
